FAERS Safety Report 17499441 (Version 3)
Quarter: 2020Q2

REPORT INFORMATION
  Report Type: Report from Study
  Country: CA (occurrence: CA)
  Receive Date: 20200305
  Receipt Date: 20200424
  Transmission Date: 20200713
  Serious: Yes (Other)
  Sender: FDA-Public Use
  Company Number: CA-REGENERON PHARMACEUTICALS, INC.-2020-22861

PATIENT

DRUGS (2)
  1. EYLEA [Suspect]
     Active Substance: AFLIBERCEPT
     Indication: DIABETIC RETINOPATHY
  2. EYLEA [Suspect]
     Active Substance: AFLIBERCEPT
     Indication: DIABETIC RETINAL OEDEMA
     Dosage: BOTH EYES, Q3MON
     Dates: start: 201903

REACTIONS (5)
  - Product administered at inappropriate site [Unknown]
  - Blindness unilateral [Unknown]
  - Retinal ischaemia [Unknown]
  - Retinal artery embolism [Unknown]
  - Glaucoma [Unknown]
